FAERS Safety Report 8085020-0 (Version None)
Quarter: 2012Q1

REPORT INFORMATION
  Report Type: 
  Country: None (occurrence: None)
  Receive Date: 20120128
  Receipt Date: 20110321
  Transmission Date: 20120608
  Serious: No
  Sender: FDA-Public Use
  Company Number: US-ABBOTT-11P-163-0713171-00

PATIENT
  Sex: Female
  Weight: 114.86 kg

DRUGS (4)
  1. HUMIRA [Suspect]
     Indication: PSORIASIS
     Route: 058
     Dates: start: 20110201
  2. HUMIRA [Suspect]
     Indication: PSORIATIC ARTHROPATHY
  3. ATENOLOL [Concomitant]
     Indication: HYPERTENSION
  4. ZOVIA 1/35E-21 [Concomitant]
     Indication: CONTRACEPTION

REACTIONS (1)
  - NASOPHARYNGITIS [None]
